FAERS Safety Report 6265771-0 (Version None)
Quarter: 2009Q3

REPORT INFORMATION
  Report Type: 
  Country: None (occurrence: None)
  Receive Date: 20090709
  Receipt Date: 20090709
  Transmission Date: 20100115
  Serious: No
  Sender: FDA-Public Use
  Company Number: None

PATIENT
  Sex: Male

DRUGS (5)
  1. COUMADIN [Suspect]
     Dosage: ONCE A DAY ORALLY
     Route: 048
     Dates: start: 20090311, end: 20090319
  2. . [Concomitant]
  3. . [Concomitant]
  4. . [Concomitant]
  5. . [Concomitant]

REACTIONS (3)
  - BLISTER [None]
  - DRUG HYPERSENSITIVITY [None]
  - PSYCHOMOTOR HYPERACTIVITY [None]
